FAERS Safety Report 10917982 (Version 2)
Quarter: 2015Q1

REPORT INFORMATION
  Report Type: Report from Study
  Country: US (occurrence: US)
  Receive Date: 20150316
  Receipt Date: 20150331
  Transmission Date: 20150721
  Serious: Yes (Other)
  Sender: FDA-Public Use
  Company Number: US-VERTEX PHARMACEUTICALS-2015-000762

PATIENT
  Age: 32 Year
  Sex: Female
  Weight: 74 kg

DRUGS (16)
  1. ZITHROMAX [Concomitant]
     Active Substance: AZITHROMYCIN DIHYDRATE
     Dosage: 500 MG, M/W/F
     Route: 048
     Dates: start: 20141022
  2. ATIVAN [Concomitant]
     Active Substance: LORAZEPAM
     Indication: ANXIETY
     Dosage: 0.5-1 MG, TID, PRN
     Route: 048
  3. COLACE [Concomitant]
     Active Substance: DOCUSATE SODIUM
     Dosage: 100 MG, BID
     Route: 048
     Dates: start: 20150121
  4. PHENERGAN [Concomitant]
     Active Substance: PROMETHAZINE HYDROCHLORIDE
     Indication: NAUSEA
     Dosage: 25 MG, QID, PRN,
     Route: 048
     Dates: start: 20121217
  5. PROVENTIL HFA [Concomitant]
     Active Substance: ALBUTEROL SULFATE
     Dosage: 2-4 PUFFS, Q4HRS
     Route: 055
     Dates: start: 20140606
  6. CAYSTON [Concomitant]
     Active Substance: AZTREONAM
     Dosage: 1 PUFF, TID, 1MONTHS OFF, 1 MONTH ON
     Route: 055
     Dates: start: 20120314
  7. KALYDECO [Suspect]
     Active Substance: IVACAFTOR
     Indication: CYSTIC FIBROSIS
     Dosage: 150 MG, BID
     Route: 048
     Dates: start: 20130826
  8. ADVAIR HFA [Concomitant]
     Active Substance: FLUTICASONE PROPIONATE\SALMETEROL XINAFOATE
     Dosage: 1 PUFFS, BID
     Route: 055
     Dates: start: 20091012
  9. ZOFRAN [Concomitant]
     Active Substance: ONDANSETRON HYDROCHLORIDE
     Indication: NAUSEA
     Dosage: 4 MG, QID, PRN
     Route: 048
     Dates: start: 20131221
  10. ULTRAM [Concomitant]
     Active Substance: TRAMADOL HYDROCHLORIDE
     Dosage: 50 MG, BID, PRN
     Route: 048
     Dates: start: 20140429
  11. FLONASE [Concomitant]
     Active Substance: FLUTICASONE PROPIONATE
     Dosage: 2 SPRAYS, QD
     Route: 055
  12. SINGULAIR [Concomitant]
     Active Substance: MONTELUKAST SODIUM
     Dosage: 10 MG, QD
     Route: 048
  13. MOTRIN [Concomitant]
     Active Substance: IBUPROFEN
     Indication: PAIN
     Dosage: 600 MG, PRN
     Route: 048
     Dates: start: 20141108
  14. COMBIVENT [Concomitant]
     Active Substance: ALBUTEROL SULFATE\IPRATROPIUM BROMIDE
     Dosage: 2 PUFFS, EVERY 4HRS, PRN
     Route: 055
  15. VITAMIN D3 [Concomitant]
     Active Substance: CHOLECALCIFEROL
     Dosage: 2000 IU, QD
     Route: 048
     Dates: start: 20120323
  16. DELTASONE [Concomitant]
     Active Substance: PREDNISONE
     Dosage: 2 DF T/F AND 1 DF QD
     Route: 048
     Dates: start: 20150121

REACTIONS (4)
  - Pancreatitis [Unknown]
  - Abnormal faeces [Unknown]
  - Pseudomonas test positive [None]
  - Influenza [None]

NARRATIVE: CASE EVENT DATE: 20150125
